FAERS Safety Report 9831959 (Version 2)
Quarter: 2014Q1

REPORT INFORMATION
  Report Type: Spontaneous
  Country: CA (occurrence: CA)
  Receive Date: 20140121
  Receipt Date: 20140210
  Transmission Date: 20141002
  Serious: Yes (Hospitalization, Other)
  Sender: FDA-Public Use
  Company Number: CA-ASTELLAS-2014US000557

PATIENT
  Age: 62 Year
  Sex: Male

DRUGS (3)
  1. ADVAGRAF [Suspect]
     Indication: RENAL TRANSPLANT
     Dosage: 10 MG, UID/QD
     Route: 048
  2. CYCLOPHOSPHAMIDE [Concomitant]
     Indication: PRODUCT USED FOR UNKNOWN INDICATION
     Dosage: UNK
     Route: 065
  3. PREDNISONE [Concomitant]
     Indication: PRODUCT USED FOR UNKNOWN INDICATION
     Dosage: UNK
     Route: 065

REACTIONS (10)
  - Drug dose omission [Unknown]
  - Catheter placement [Recovering/Resolving]
  - Transplant failure [Recovering/Resolving]
  - Fluid retention [Recovering/Resolving]
  - Blood glucose decreased [Recovering/Resolving]
  - Herpes dermatitis [Recovering/Resolving]
  - Blood pressure increased [Recovering/Resolving]
  - Blood creatinine increased [Recovering/Resolving]
  - Chronic allograft nephropathy [Recovering/Resolving]
  - Malaise [Recovering/Resolving]
